FAERS Safety Report 20435187 (Version 1)
Quarter: 2022Q1

REPORT INFORMATION
  Report Type: Spontaneous
  Country: US (occurrence: US)
  Receive Date: 20220206
  Receipt Date: 20220206
  Transmission Date: 20220424
  Serious: No
  Sender: FDA-Public Use
  Company Number: US-JNJFOC-20220128556

PATIENT
  Sex: Female

DRUGS (4)
  1. SPRAVATO [Suspect]
     Active Substance: ESKETAMINE
     Indication: Product used for unknown indication
     Dosage: START DATE : END OF SEPTEMBER OF LAST YEAR
     Route: 065
     Dates: start: 202109
  2. BUPROPION [Concomitant]
     Active Substance: BUPROPION
     Indication: Antidepressant therapy
     Route: 065
  3. LEXAPRO [Concomitant]
     Active Substance: ESCITALOPRAM OXALATE
     Indication: Product used for unknown indication
     Route: 065
  4. ERGOCALCIFEROL [Concomitant]
     Active Substance: ERGOCALCIFEROL
     Indication: Product used for unknown indication
     Route: 065

REACTIONS (10)
  - Adverse reaction [Unknown]
  - Nausea [Unknown]
  - Euphoric mood [Unknown]
  - Malaise [Unknown]
  - Hypertension [Recovered/Resolved]
  - Dissociation [Unknown]
  - Bedridden [Unknown]
  - Illness [Unknown]
  - Vomiting [Unknown]
  - Dysgeusia [Unknown]
